FAERS Safety Report 18620553 (Version 1)
Quarter: 2020Q4

REPORT INFORMATION
  Report Type: Spontaneous
  Country: CA (occurrence: CA)
  Receive Date: 20201216
  Receipt Date: 20201216
  Transmission Date: 20210114
  Serious: Yes (Other)
  Sender: FDA-Public Use
  Company Number: CA-CELLTRION INC.-2020CA033720

PATIENT

DRUGS (1)
  1. INFLECTRA [Suspect]
     Active Substance: INFLIXIMAB-DYYB
     Indication: COLITIS ULCERATIVE
     Dosage: 10 MG/KG Q 4 WEEKS
     Route: 042
     Dates: start: 2020

REACTIONS (9)
  - Condition aggravated [Unknown]
  - Bronchitis chronic [Unknown]
  - Back pain [Unknown]
  - Spondylolisthesis [Unknown]
  - Faecal calprotectin increased [Unknown]
  - Cough [Unknown]
  - Off label use [Unknown]
  - Radiculopathy [Unknown]
  - Therapy non-responder [Unknown]

NARRATIVE: CASE EVENT DATE: 2020
